FAERS Safety Report 9993791 (Version 1)
Quarter: 2014Q1

REPORT INFORMATION
  Report Type: Spontaneous
  Country: US (occurrence: US)
  Receive Date: 20140310
  Receipt Date: 20140310
  Transmission Date: 20141002
  Serious: No
  Sender: FDA-Public Use
  Company Number: US-AMGEN-USASP2013042907

PATIENT
  Age: 60 Year
  Sex: Female

DRUGS (3)
  1. SENSIPAR [Suspect]
     Indication: HYPERPARATHYROIDISM SECONDARY
     Dosage: 30 MG, QD
     Dates: start: 201305
  2. PRILOSEC                           /00661201/ [Concomitant]
     Indication: GASTROOESOPHAGEAL REFLUX DISEASE
  3. CALTRATE                           /00944201/ [Concomitant]

REACTIONS (1)
  - Gastrooesophageal reflux disease [Recovering/Resolving]
